FAERS Safety Report 4962819-8 (Version None)
Quarter: 2006Q2

REPORT INFORMATION
  Report Type: 
  Country: None (occurrence: None)
  Receive Date: 20060403
  Receipt Date: 20060403
  Transmission Date: 20061013
  Serious: Yes (Hospitalization)
  Sender: FDA-Public Use
  Company Number: None

PATIENT
  Age: 84 Year
  Sex: Female
  Weight: 64 kg

DRUGS (1)
  1. CEREBYX [Suspect]
     Indication: CONVULSION
     Dosage: 1000 MG ONCE IV DRIP [1 DOSE]
     Route: 041

REACTIONS (4)
  - HYPOTENSION [None]
  - RASH ERYTHEMATOUS [None]
  - RESPIRATORY GAS EXCHANGE DISORDER [None]
  - WHEEZING [None]
